FAERS Safety Report 18244890 (Version 1)
Quarter: 2020Q3

REPORT INFORMATION
  Report Type: Spontaneous
  Country: US (occurrence: US)
  Receive Date: 20200909
  Receipt Date: 20200909
  Transmission Date: 20201103
  Serious: Yes (Hospitalization, Other)
  Sender: FDA-Public Use
  Company Number: US-VISTAPHARM, INC.-VER202009-001515

PATIENT
  Age: 2 Year
  Sex: Male

DRUGS (3)
  1. FELBAMATE, USP [Suspect]
     Active Substance: FELBAMATE
     Indication: INFANTILE SPASMS
     Dosage: UNKNOWN
     Route: 065
  2. VIGABATRIN. [Concomitant]
     Active Substance: VIGABATRIN
     Indication: INFANTILE SPASMS
     Dosage: UNKNOWN
     Route: 065
  3. PREDNISOLONE. [Suspect]
     Active Substance: PREDNISOLONE
     Indication: INFANTILE SPASMS
     Dosage: 18 MG (3.75 MG/KG/DAY)
     Route: 048

REACTIONS (2)
  - Product use in unapproved indication [Unknown]
  - Bradycardia [Recovered/Resolved]
